FAERS Safety Report 10780924 (Version 1)
Quarter: 2015Q1

REPORT INFORMATION
  Report Type: Spontaneous
  Country: US (occurrence: None)
  Receive Date: 20150209
  Receipt Date: 20150209
  Transmission Date: 20150721
  Serious: No
  Sender: FDA-Public Use
  Company Number: None

PATIENT
  Age: 45 Year
  Sex: Female

DRUGS (1)
  1. HUMIRA [Suspect]
     Active Substance: ADALIMUMAB
     Indication: RHEUMATOID ARTHRITIS
     Dosage: 1 PEN EVERY OTHER WEEK SUBCUTANEOUS
     Route: 058
     Dates: start: 20150203, end: 20150206

REACTIONS (1)
  - Headache [None]

NARRATIVE: CASE EVENT DATE: 20150203
